FAERS Safety Report 15867775 (Version 1)
Quarter: 2019Q1

REPORT INFORMATION
  Report Type: Report from Study
  Country: US (occurrence: US)
  Receive Date: 20190125
  Receipt Date: 20190125
  Transmission Date: 20190417
  Serious: Yes (Other)
  Sender: FDA-Public Use
  Company Number: US-INSMED, INC.-US-INS-18-00100

PATIENT
  Age: 53 Year
  Sex: Female

DRUGS (3)
  1. LIPOSOMAL AMIKACIN [Suspect]
     Active Substance: AMIKACIN SULFATE
     Indication: MYCOBACTERIUM AVIUM COMPLEX INFECTION
     Route: 055
     Dates: start: 20180123, end: 20180715
  2. CLOFAZIMINE [Concomitant]
     Active Substance: CLOFAZIMINE
     Indication: MYCOBACTERIUM AVIUM COMPLEX INFECTION
     Route: 048
     Dates: start: 20180227
  3. LIPOSOMAL  AMIKACIN [Suspect]
     Active Substance: AMIKACIN SULFATE
     Route: 055
     Dates: start: 20180808

REACTIONS (1)
  - Dysphonia [Recovered/Resolved]

NARRATIVE: CASE EVENT DATE: 20180707
